FAERS Safety Report 5774666-8 (Version None)
Quarter: 2008Q2

REPORT INFORMATION
  Report Type: 
  Country: None (occurrence: None)
  Receive Date: 20080617
  Receipt Date: 20080610
  Transmission Date: 20081010
  Serious: Yes (Hospitalization)
  Sender: FDA-Public Use
  Company Number: CH-RANBAXY-2008RR-15831

PATIENT

DRUGS (5)
  1. MINOCYCLINE HCL [Suspect]
     Indication: ACNE
     Route: 048
  2. LEVOFLOXACIN [Concomitant]
     Indication: PNEUMONIA
  3. IMIPENEM [Concomitant]
  4. CILASTATIN [Concomitant]
  5. CLARITHROMYCIN [Concomitant]

REACTIONS (1)
  - ACUTE RESPIRATORY FAILURE [None]
